FAERS Safety Report 24868846 (Version 1)
Quarter: 2025Q1

REPORT INFORMATION
  Report Type: Spontaneous
  Country: VE (occurrence: VE)
  Receive Date: 20250121
  Receipt Date: 20250121
  Transmission Date: 20250408
  Serious: Yes (Other)
  Sender: TASMAN PHARMA
  Company Number: VE-TASMAN PHARMA, INC.-2025TSM00004

PATIENT
  Age: 15 Year
  Sex: Male

DRUGS (2)
  1. CLOZAPINE [Suspect]
     Active Substance: CLOZAPINE
     Indication: Oppositional defiant disorder
  2. CLOZAPINE [Suspect]
     Active Substance: CLOZAPINE
     Indication: Attention deficit hyperactivity disorder

REACTIONS (1)
  - Necrotising colitis [Unknown]
